FAERS Safety Report 16634805 (Version 1)
Quarter: 2019Q3

REPORT INFORMATION
  Report Type: Spontaneous
  Country: GB (occurrence: GB)
  Receive Date: 20190726
  Receipt Date: 20190726
  Transmission Date: 20191004
  Serious: Yes (Hospitalization)
  Sender: FDA-Public Use
  Company Number: GB-TEVA-2019-GB-1083468

PATIENT
  Age: 89 Year
  Sex: Male

DRUGS (9)
  1. ATORVASTATIN [Concomitant]
     Active Substance: ATORVASTATIN
     Dosage: NIGHT, 80 MILLIGRAM PER 1 DAY
     Route: 048
  2. LANSOPRAZOLE. [Concomitant]
     Active Substance: LANSOPRAZOLE
     Dosage: MORNING, 15 MILLIGRAM PER 1 DAY
     Route: 048
  3. ACETYLSALICYLIC ACID [Suspect]
     Active Substance: ASPIRIN
     Dosage: MORNING, 75 MILLIGRAM PER 1 DAY
     Route: 048
  4. RIVAROXABAN [Suspect]
     Active Substance: RIVAROXABAN
     Dosage: MORNING, 15 MILLIGRAM PER 1 DAY
     Route: 048
  5. GABAPENTIN. [Concomitant]
     Active Substance: GABAPENTIN
     Dosage: 300 MILLIGRAM PER 1 DAY
     Route: 048
  6. SERTRALINE [Concomitant]
     Active Substance: SERTRALINE HYDROCHLORIDE
     Dosage: MORNING, 50 MILLIGRAM PER 1 DAY
     Route: 048
  7. RAMIPRIL. [Suspect]
     Active Substance: RAMIPRIL
     Dosage: MORNING, 5 MILLIGRAM PER 1 DAY
     Route: 048
  8. NICORANDIL [Suspect]
     Active Substance: NICORANDIL
     Dosage: MORNING AND NIGHT, 20 MILLIGRAM PER 1 DAY
     Route: 048
  9. BISOPROLOL [Concomitant]
     Active Substance: BISOPROLOL
     Dosage: MORNING, 2.5 MILLIGRAM PER 1 DAY
     Route: 048

REACTIONS (4)
  - Fall [Recovered/Resolved]
  - Head injury [Recovered/Resolved]
  - Hypotension [Recovered/Resolved]
  - Bleeding time prolonged [Unknown]

NARRATIVE: CASE EVENT DATE: 20190521
